FAERS Safety Report 19445068 (Version 2)
Quarter: 2021Q3

REPORT INFORMATION
  Report Type: Spontaneous
  Country: US (occurrence: US)
  Receive Date: 20210621
  Receipt Date: 20210706
  Transmission Date: 20211014
  Serious: Yes (Death)
  Sender: FDA-Public Use
  Company Number: US-SAGENT PHARMACEUTICALS-2021SAG001264

PATIENT

DRUGS (6)
  1. FILGRASTIM [Suspect]
     Active Substance: FILGRASTIM
     Indication: ACUTE MYELOID LEUKAEMIA
     Dosage: 5 MCG/KG, UNK
     Route: 042
  2. CYTARABINE. [Suspect]
     Active Substance: CYTARABINE
     Indication: ACUTE MYELOID LEUKAEMIA
     Dosage: 1.5?2 G/M2
     Route: 042
  3. FLUDARABINE PHOSPHATE. [Suspect]
     Active Substance: FLUDARABINE PHOSPHATE
     Indication: ACUTE MYELOID LEUKAEMIA
     Dosage: 30 MG/M2, UNK
     Route: 042
  4. VENETOCLAX. [Suspect]
     Active Substance: VENETOCLAX
     Indication: ACUTE MYELOID LEUKAEMIA
     Dosage: UNK
  5. IDARUBICIN [Suspect]
     Active Substance: IDARUBICIN
     Indication: ACUTE MYELOID LEUKAEMIA
     Dosage: 8 MG/M2, UNK
     Route: 042
  6. IDARUBICIN [Suspect]
     Active Substance: IDARUBICIN
     Dosage: 6 MG/M2, UNK
     Route: 042

REACTIONS (3)
  - Pulmonary haemorrhage [Fatal]
  - Drug ineffective for unapproved indication [Unknown]
  - Off label use [Unknown]
